FAERS Safety Report 24292485 (Version 2)
Quarter: 2024Q3

REPORT INFORMATION
  Report Type: Spontaneous
  Country: SG (occurrence: SG)
  Receive Date: 20240906
  Receipt Date: 20240909
  Transmission Date: 20241017
  Serious: Yes (Other)
  Sender: NOVARTIS
  Company Number: SG-002147023-NVSC2020SG086701

PATIENT
  Sex: Female

DRUGS (3)
  1. SECUKINUMAB [Suspect]
     Active Substance: SECUKINUMAB
     Indication: Psoriatic arthropathy
     Dosage: 300 MG
     Route: 058
     Dates: start: 20200128
  2. PREDNISOLONE [Concomitant]
     Active Substance: PREDNISOLONE
     Indication: Psoriasis
     Dosage: 5 MG -10 MG A DAY
     Route: 065
  3. ETANERCEPT [Concomitant]
     Active Substance: ETANERCEPT
     Indication: Psoriatic arthropathy
     Dosage: 25-50 MG EVERY 1-2 WEEKS
     Route: 065
     Dates: start: 2007

REACTIONS (7)
  - Paradoxical psoriasis [Recovered/Resolved]
  - Chills [Recovered/Resolved]
  - Erythema [Recovered/Resolved]
  - Pain of skin [Recovered/Resolved]
  - Pyrexia [Recovered/Resolved]
  - Alopecia [Recovered/Resolved]
  - Dermatitis [Recovered/Resolved]

NARRATIVE: CASE EVENT DATE: 20200130
